FAERS Safety Report 14985155 (Version 1)
Quarter: 2018Q2

REPORT INFORMATION
  Report Type: Spontaneous
  Country: US (occurrence: US)
  Receive Date: 20180515
  Receipt Date: 20180515
  Transmission Date: 20180711
  Serious: Yes (Hospitalization)
  Sender: FDA-Public Use
  Company Number: None

PATIENT
  Age: 9 Year
  Sex: Male
  Weight: 36.7 kg

DRUGS (2)
  1. BICILLIN L-A [Suspect]
     Active Substance: PENICILLIN G BENZATHINE
     Indication: PHARYNGITIS STREPTOCOCCAL
     Dosage: OTHER STRENGTH:1.2 MILLION UNITS/;?
     Route: 030
     Dates: start: 20180503
  2. AMOXICILLIN. [Concomitant]
     Active Substance: AMOXICILLIN

REACTIONS (4)
  - Contusion [None]
  - Peripheral swelling [None]
  - Pain [None]
  - Hypoaesthesia [None]

NARRATIVE: CASE EVENT DATE: 20180506
